FAERS Safety Report 9263796 (Version 1)
Quarter: 2013Q2

REPORT INFORMATION
  Report Type: Spontaneous
  Country: US (occurrence: None)
  Receive Date: 20130429
  Receipt Date: 20130429
  Transmission Date: 20140414
  Serious: Yes (Other)
  Sender: FDA-Public Use
  Company Number: None

PATIENT
  Age: 23 Year
  Sex: Male
  Weight: 68.04 kg

DRUGS (1)
  1. CITALOPRAM [Suspect]
     Indication: ANXIETY
     Dosage: DOSE 50
     Dates: start: 20120501, end: 20130430

REACTIONS (5)
  - Abnormal behaviour [None]
  - Emotional disorder [None]
  - Abnormal behaviour [None]
  - Off label use [None]
  - Incorrect dose administered [None]
